FAERS Safety Report 21342884 (Version 1)
Quarter: 2022Q3

REPORT INFORMATION
  Report Type: Report from Study
  Country: US (occurrence: US)
  Receive Date: 20220916
  Receipt Date: 20220916
  Transmission Date: 20221027
  Serious: No
  Sender: FDA-Public Use
  Company Number: US-GSK-US2022011053

PATIENT

DRUGS (1)
  1. BELANTAMAB MAFODOTIN [Suspect]
     Active Substance: BELANTAMAB MAFODOTIN
     Indication: Product used for unknown indication
     Dosage: UNK

REACTIONS (6)
  - Keratopathy [Recovered/Resolved]
  - Visual acuity reduced [Recovered/Resolved]
  - Corneal disorder [Recovered/Resolved]
  - Night blindness [Recovered/Resolved]
  - Dry eye [Recovered/Resolved]
  - Foreign body sensation in eyes [Recovered/Resolved]

NARRATIVE: CASE EVENT DATE: 20220113
